FAERS Safety Report 13152395 (Version 8)
Quarter: 2017Q3

REPORT INFORMATION
  Report Type: Spontaneous
  Country: US (occurrence: US)
  Receive Date: 20170125
  Receipt Date: 20170814
  Transmission Date: 20171127
  Serious: Yes (Death, Hospitalization)
  Sender: FDA-Public Use
  Company Number: US-ACTELION-A-US2017-148839

PATIENT
  Age: 72 Year
  Sex: Male
  Weight: 78.5 kg

DRUGS (10)
  1. NORVASC [Concomitant]
     Active Substance: AMLODIPINE BESYLATE
     Dosage: 5 MG, QD
  2. LIPITOR [Concomitant]
     Active Substance: ATORVASTATIN CALCIUM
     Dosage: 10 MG, QD
  3. TYVASO [Suspect]
     Active Substance: TREPROSTINIL
     Dosage: 5 BPM, QID
     Route: 055
     Dates: start: 20170709
  4. TYVASO [Suspect]
     Active Substance: TREPROSTINIL
     Indication: PRODUCT USED FOR UNKNOWN INDICATION
     Dosage: 6 BPM, UNK
     Route: 055
  5. OPSUMIT [Suspect]
     Active Substance: MACITENTAN
     Indication: PULMONARY ARTERIAL HYPERTENSION
     Dosage: 10 MG, QD
     Route: 048
     Dates: start: 20150914
  6. ASPIRIN. [Concomitant]
     Active Substance: ASPIRIN
     Dosage: 81 MG, QD
  7. LASIX [Concomitant]
     Active Substance: FUROSEMIDE
     Indication: ACUTE KIDNEY INJURY
  8. ADCIRCA [Concomitant]
     Active Substance: TADALAFIL
  9. LEXAPRO [Concomitant]
     Active Substance: ESCITALOPRAM OXALATE
     Dosage: 10 MG, QD
  10. LASIX [Concomitant]
     Active Substance: FUROSEMIDE
     Indication: FLUID OVERLOAD
     Dosage: 10 MG, BID

REACTIONS (21)
  - Cardiac arrest [Fatal]
  - Supraventricular tachycardia [Unknown]
  - Cerebral haemorrhage [Unknown]
  - Throat irritation [Unknown]
  - Fluid overload [Unknown]
  - Pulseless electrical activity [Unknown]
  - Subarachnoid haemorrhage [Unknown]
  - Bradycardia [Unknown]
  - Acute kidney injury [Unknown]
  - Headache [Unknown]
  - Cough [Unknown]
  - Fall [Unknown]
  - Vertigo [Unknown]
  - Peripheral swelling [Unknown]
  - Cardio-respiratory arrest [Unknown]
  - Foot fracture [Unknown]
  - Oedema peripheral [Unknown]
  - Nausea [Unknown]
  - Syncope [Unknown]
  - Blood glucose increased [Unknown]
  - Flushing [Unknown]

NARRATIVE: CASE EVENT DATE: 201609
